FAERS Safety Report 9407710 (Version 1)
Quarter: 2013Q3

REPORT INFORMATION
  Report Type: Spontaneous
  Country: US (occurrence: US)
  Receive Date: 20130718
  Receipt Date: 20130718
  Transmission Date: 20140515
  Serious: No
  Sender: FDA-Public Use
  Company Number: US-PFIZER INC-2013210952

PATIENT
  Age: 58 Year
  Sex: Female
  Weight: 61.22 kg

DRUGS (3)
  1. LYRICA [Suspect]
     Indication: HERPES ZOSTER
     Dosage: 300 MG, 2X/DAY
     Dates: start: 2009
  2. SYNTHROID [Concomitant]
     Indication: THYROID DISORDER
     Dosage: 185 UG, 1X/DAY
  3. TAMOXIFEN [Concomitant]
     Dosage: 50 MG, 1X/DAY

REACTIONS (2)
  - Therapeutic response unexpected [Unknown]
  - Hot flush [Unknown]
